FAERS Safety Report 5928334-X (Version None)
Quarter: 2008Q4

REPORT INFORMATION
  Report Type: 
  Country: None (occurrence: None)
  Receive Date: 20081023
  Receipt Date: 20081014
  Transmission Date: 20090506
  Serious: Yes (Other)
  Sender: FDA-Public Use
  Company Number: US-PFIZER INC-2008082802

PATIENT
  Sex: Female
  Weight: 63.5 kg

DRUGS (8)
  1. XANAX [Suspect]
     Indication: ANXIETY
     Dates: start: 19780101
  2. XANAX [Suspect]
     Indication: PANIC ATTACK
  3. XANAX [Suspect]
  4. XANAX [Suspect]
     Indication: FEAR
  5. ALPRAZOLAM [Suspect]
     Indication: ANXIETY
     Dates: start: 20061101, end: 20061101
  6. ALPRAZOLAM [Suspect]
     Indication: PANIC ATTACK
  7. ALPRAZOLAM [Suspect]
  8. ALPRAZOLAM [Suspect]
     Indication: FEAR

REACTIONS (8)
  - ANXIETY [None]
  - DEPENDENCE [None]
  - DRUG INEFFECTIVE [None]
  - HEARING IMPAIRED [None]
  - JOINT INJURY [None]
  - NERVOUSNESS [None]
  - THERAPEUTIC RESPONSE UNEXPECTED WITH DRUG SUBSTITUTION [None]
  - TREMOR [None]
